FAERS Safety Report 24160311 (Version 2)
Quarter: 2024Q3

REPORT INFORMATION
  Report Type: Report from Study
  Country: CA (occurrence: CA)
  Receive Date: 20240801
  Receipt Date: 20240918
  Transmission Date: 20241016
  Serious: Yes (Hospitalization)
  Sender: BIOGEN
  Company Number: CA-BIOGEN-2024BI01275869

PATIENT
  Sex: Male

DRUGS (1)
  1. PLEGRIDY [Suspect]
     Active Substance: PEGINTERFERON BETA-1A
     Indication: Multiple sclerosis
     Route: 050
     Dates: start: 20170809

REACTIONS (6)
  - Fall [Recovered/Resolved]
  - Dementia [Unknown]
  - Dysphagia [Unknown]
  - Mastication disorder [Unknown]
  - Kidney contusion [Unknown]
  - Rib fracture [Unknown]
